FAERS Safety Report 20631568 (Version 1)
Quarter: 2022Q1

REPORT INFORMATION
  Report Type: Spontaneous
  Country: US (occurrence: None)
  Receive Date: 20220323
  Receipt Date: 20220323
  Transmission Date: 20220423
  Serious: Yes (Other)
  Sender: FDA-Public Use
  Company Number: None

PATIENT
  Age: 40 Year
  Sex: Male
  Weight: 71 kg

DRUGS (1)
  1. EVUSHELD [Suspect]
     Active Substance: CILGAVIMAB\TIXAGEVIMAB
     Indication: Colitis ulcerative
     Dates: start: 20220107, end: 20220107

REACTIONS (3)
  - Rash [None]
  - Skin lesion [None]
  - Scab [None]

NARRATIVE: CASE EVENT DATE: 20220108
